FAERS Safety Report 19941760 (Version 2)
Quarter: 2021Q4

REPORT INFORMATION
  Report Type: Spontaneous
  Country: US (occurrence: US)
  Receive Date: 20211011
  Receipt Date: 20211017
  Transmission Date: 20220304
  Serious: No
  Sender: FDA-Public Use
  Company Number: US-TEVA-2021-US-1962235

PATIENT
  Age: 62 Year
  Sex: Female

DRUGS (3)
  1. MUPIROCIN [Suspect]
     Active Substance: MUPIROCIN
     Indication: Nasal discomfort
     Dosage: 3 TIMES PER DAY
     Route: 061
     Dates: start: 2020
  2. MUPIROCIN [Suspect]
     Active Substance: MUPIROCIN
     Indication: Erythema
  3. MUPIROCIN [Suspect]
     Active Substance: MUPIROCIN
     Indication: Swelling

REACTIONS (5)
  - Rib fracture [Not Recovered/Not Resolved]
  - Head injury [Not Recovered/Not Resolved]
  - Off label use [Unknown]
  - Product use in unapproved indication [Unknown]
  - Expired product administered [Unknown]

NARRATIVE: CASE EVENT DATE: 20200101
